FAERS Safety Report 8965898 (Version 1)
Quarter: 2012Q4

REPORT INFORMATION
  Report Type: Spontaneous
  Country: DK (occurrence: None)
  Receive Date: 20121204
  Receipt Date: 20121204
  Transmission Date: 20130627
  Serious: Yes (Hospitalization)
  Sender: FDA-Public Use
  Company Number: 2012MA013653

PATIENT
  Age: 2 Hour
  Sex: Male

DRUGS (1)
  1. SERTRALINE HYDROCHLORIDE TABLETS [Suspect]
     Indication: DEPRESSION
     Route: 064

REACTIONS (7)
  - Maternal drugs affecting foetus [None]
  - Neonatal tachypnoea [None]
  - Tardive dyskinesia [None]
  - Dyskinesia [None]
  - Hypertonia neonatal [None]
  - Grunting [None]
  - Neonatal respiratory distress syndrome [None]
